FAERS Safety Report 22608982 (Version 1)
Quarter: 2023Q2

REPORT INFORMATION
  Report Type: Spontaneous
  Country: US (occurrence: US)
  Receive Date: 20230616
  Receipt Date: 20230616
  Transmission Date: 20230721
  Serious: Yes (Other)
  Sender: FDA-Public Use
  Company Number: US-ALKEM LABORATORIES LIMITED-US-ALKEM-2023-06064

PATIENT
  Age: 46 Year
  Sex: Male

DRUGS (106)
  1. METOPROLOL SUCCINATE [Suspect]
     Active Substance: METOPROLOL SUCCINATE
     Indication: Hypertension
     Dosage: 25 MILLIGRAM, QD, (ON DAY 1)
     Route: 065
  2. METOPROLOL SUCCINATE [Suspect]
     Active Substance: METOPROLOL SUCCINATE
     Dosage: 25 MILLIGRAM, QD, (ON DAY 7)
     Route: 065
  3. METOPROLOL SUCCINATE [Suspect]
     Active Substance: METOPROLOL SUCCINATE
     Dosage: 25 MILLIGRAM, QD, (ON DAY 8)
     Route: 065
  4. METOPROLOL SUCCINATE [Suspect]
     Active Substance: METOPROLOL SUCCINATE
     Dosage: 25 MILLIGRAM, QD, (ON DAY 13)
     Route: 065
  5. METOPROLOL SUCCINATE [Suspect]
     Active Substance: METOPROLOL SUCCINATE
     Dosage: 25 MILLIGRAM, QD, (ON DAY 15)
     Route: 065
  6. METOPROLOL SUCCINATE [Suspect]
     Active Substance: METOPROLOL SUCCINATE
     Dosage: 25 MILLIGRAM, QD, (ON DAY 16)
     Route: 065
  7. METOPROLOL SUCCINATE [Suspect]
     Active Substance: METOPROLOL SUCCINATE
     Dosage: 25 MILLIGRAM, QD, (ON DAY 19)
     Route: 065
  8. ASPIRIN [Interacting]
     Active Substance: ASPIRIN
     Indication: Cardiovascular event prophylaxis
     Dosage: 81 MILLIGRAM, QD, (ON DAY 1)
     Route: 065
  9. ASPIRIN [Interacting]
     Active Substance: ASPIRIN
     Dosage: 81 MILLIGRAM, QD, (ON DAY 4)
     Route: 065
  10. ASPIRIN [Interacting]
     Active Substance: ASPIRIN
     Dosage: 81 MILLIGRAM, QD, (ON DAY 7)
     Route: 065
  11. ASPIRIN [Interacting]
     Active Substance: ASPIRIN
     Dosage: 81 MILLIGRAM, QD, (ON DAY 8)
     Route: 065
  12. ASPIRIN [Interacting]
     Active Substance: ASPIRIN
     Dosage: 81 MILLIGRAM, QD, (ON DAY 13)
     Route: 065
  13. ASPIRIN [Interacting]
     Active Substance: ASPIRIN
     Dosage: 81 MILLIGRAM, QD, (ON DAY 15)
     Route: 065
  14. ASPIRIN [Interacting]
     Active Substance: ASPIRIN
     Dosage: 81 MILLIGRAM, QD, (ON DAY 16)
     Route: 065
  15. ASPIRIN [Interacting]
     Active Substance: ASPIRIN
     Dosage: 81 MILLIGRAM, QD, (ON DAY 19)
     Route: 065
  16. ASPIRIN [Interacting]
     Active Substance: ASPIRIN
     Dosage: 81 MILLIGRAM, QD, (ON DAY 22)
     Route: 065
  17. CLOZAPINE [Interacting]
     Active Substance: CLOZAPINE
     Indication: Schizophrenia
     Dosage: 5 MILLIGRAM, QD, (ON DAY 1)
     Route: 065
  18. CLOZAPINE [Interacting]
     Active Substance: CLOZAPINE
     Dosage: 50 MILLIGRAM, QD, (ON DAY 4)
     Route: 065
  19. CLOZAPINE [Interacting]
     Active Substance: CLOZAPINE
     Dosage: 50 MILLIGRAM, QD, (ON DAY 7)
     Route: 065
  20. CLOZAPINE [Interacting]
     Active Substance: CLOZAPINE
     Dosage: 100 MILLIGRAM, QD, (ON DAY 8)
     Route: 065
  21. CLOZAPINE [Interacting]
     Active Substance: CLOZAPINE
     Dosage: 150 MILLIGRAM, QD, (ON DAY 13)
     Route: 065
  22. CLOZAPINE [Interacting]
     Active Substance: CLOZAPINE
     Dosage: 150 MILLIGRAM, QD, (ON DAY 15)
     Route: 065
  23. CLOZAPINE [Interacting]
     Active Substance: CLOZAPINE
     Dosage: 200 MILLIGRAM, QD, (ON DAY 16)
     Route: 065
  24. CLOZAPINE [Interacting]
     Active Substance: CLOZAPINE
     Dosage: 250 MILLIGRAM, QD, (ON DAY 19)
     Route: 065
  25. CLOZAPINE [Interacting]
     Active Substance: CLOZAPINE
     Dosage: 250 MILLIGRAM, QD, (ON DAY 23)
     Route: 065
  26. CLOZAPINE [Interacting]
     Active Substance: CLOZAPINE
     Dosage: 200 MILLIGRAM, QD, (ON DAY 24)
     Route: 065
  27. CLOZAPINE [Interacting]
     Active Substance: CLOZAPINE
     Dosage: 100 MILLIGRAM, QD, (ON DAY 25)
     Route: 065
  28. VALPROATE [Interacting]
     Active Substance: VALPROIC ACID
     Indication: Product used for unknown indication
     Dosage: 1500 MILLIGRAM, QD, (ON DAY 1)
     Route: 065
  29. VALPROATE [Interacting]
     Active Substance: VALPROIC ACID
     Dosage: 1500 MILLIGRAM, QD, (ON DAY 4)
     Route: 065
  30. VALPROATE [Interacting]
     Active Substance: VALPROIC ACID
     Dosage: 1500 MILLIGRAM, QD, (ON DAY 7)
     Route: 065
  31. VALPROATE [Interacting]
     Active Substance: VALPROIC ACID
     Dosage: 1500 MILLIGRAM, QD, (ON DAY 8)
     Route: 065
  32. VALPROATE [Interacting]
     Active Substance: VALPROIC ACID
     Dosage: 1500 MILLIGRAM, QD, (ON DAY 13)
     Route: 065
  33. VALPROATE [Interacting]
     Active Substance: VALPROIC ACID
     Dosage: 1500 MILLIGRAM, QD, (ON DAY 15)
     Route: 065
  34. VALPROATE [Interacting]
     Active Substance: VALPROIC ACID
     Dosage: 1500 MILLIGRAM, QD, (ON DAY 16)
     Route: 065
  35. VALPROATE [Interacting]
     Active Substance: VALPROIC ACID
     Dosage: 1500 MILLIGRAM, QD, (ON DAY 19)
     Route: 065
  36. VALPROATE [Interacting]
     Active Substance: VALPROIC ACID
     Dosage: 1500 MILLIGRAM, QD, (ON DAY 22)
     Route: 065
  37. VALPROATE [Interacting]
     Active Substance: VALPROIC ACID
     Dosage: 1500 MILLIGRAM, QD, (ON DAY 23)
     Route: 065
  38. VALPROATE [Interacting]
     Active Substance: VALPROIC ACID
     Dosage: 1500 MILLIGRAM, QD, (ON DAY 24)
     Route: 065
  39. VALPROATE [Interacting]
     Active Substance: VALPROIC ACID
     Dosage: 1500 MILLIGRAM, QD, (ON DAY 25)
     Route: 065
  40. VALPROATE [Interacting]
     Active Substance: VALPROIC ACID
     Dosage: 1500 MILLIGRAM, QD, (ON DAY 26)
     Route: 065
  41. ACETAMINOPHEN [Concomitant]
     Active Substance: ACETAMINOPHEN
     Indication: Product used for unknown indication
     Dosage: 650 MILLIGRAM, QD, (ON DAY 16)
     Route: 065
  42. ACETAMINOPHEN [Concomitant]
     Active Substance: ACETAMINOPHEN
     Dosage: 650 MILLIGRAM, QD, (ON DAY 19)
     Route: 065
  43. ACETAMINOPHEN [Concomitant]
     Active Substance: ACETAMINOPHEN
     Dosage: 650 MILLIGRAM, QD, (ON DAY 22)
     Route: 065
  44. ATORVASTATIN [Concomitant]
     Active Substance: ATORVASTATIN
     Indication: Dyslipidaemia
     Dosage: 10 MILLIGRAM, QD, (ON DAY 1)
     Route: 065
  45. ATORVASTATIN [Concomitant]
     Active Substance: ATORVASTATIN
     Dosage: 10 MILLIGRAM, QD, (ON DAY 7)
     Route: 065
  46. ATORVASTATIN [Concomitant]
     Active Substance: ATORVASTATIN
     Dosage: 10 MILLIGRAM, QD, (ON DAY 8)
     Route: 065
  47. BENZTROPINE [Concomitant]
     Active Substance: BENZTROPINE
     Indication: Product used for unknown indication
     Dosage: 2 MILLIGRAM, QD, (ON DAY 1)
     Route: 065
  48. BENZTROPINE [Concomitant]
     Active Substance: BENZTROPINE
     Dosage: 2 MILLIGRAM, QD, (ON DAY 7)
     Route: 065
  49. BENZTROPINE [Concomitant]
     Active Substance: BENZTROPINE
     Dosage: 2 MILLIGRAM, QD, (ON DAY 8)
     Route: 065
  50. BENZTROPINE [Concomitant]
     Active Substance: BENZTROPINE
     Dosage: 2 MILLIGRAM, QD, (ON DAY 13)
     Route: 065
  51. BENZTROPINE [Concomitant]
     Active Substance: BENZTROPINE
     Dosage: 2 MILLIGRAM, QD, (ON DAY 15)
     Route: 065
  52. BENZTROPINE [Concomitant]
     Active Substance: BENZTROPINE
     Dosage: 2 MILLIGRAM, QD, (ON DAY 16)
     Route: 065
  53. BENZTROPINE [Concomitant]
     Active Substance: BENZTROPINE
     Dosage: 1 MILLIGRAM, QD, (ON DAY 19)
     Route: 065
  54. CHLORPROMAZINE [Concomitant]
     Active Substance: CHLORPROMAZINE
     Indication: Product used for unknown indication
     Dosage: 100 MILLIGRAM, QD, (ON DAY 1)
     Route: 065
  55. DIPHENHYDRAMINE [Concomitant]
     Active Substance: DIPHENHYDRAMINE
     Indication: Product used for unknown indication
     Dosage: 50 MILLIGRAM, QD, (ON DAY 1)
     Route: 065
  56. DOCUSATE [Concomitant]
     Active Substance: DOCUSATE
     Indication: Constipation
     Dosage: 100 MILLIGRAM, QD, (ON DAY 1)
     Route: 065
  57. DOCUSATE [Concomitant]
     Active Substance: DOCUSATE
     Dosage: 100 MILLIGRAM, QD, (ON DAY 7)
     Route: 065
  58. DOCUSATE [Concomitant]
     Active Substance: DOCUSATE
     Dosage: 100 MILLIGRAM, QD, (ON DAY 8)
     Route: 065
  59. DOCUSATE [Concomitant]
     Active Substance: DOCUSATE
     Dosage: 100 MILLIGRAM, QD, (ON DAY 13)
     Route: 065
  60. DOCUSATE [Concomitant]
     Active Substance: DOCUSATE
     Dosage: 100 MILLIGRAM, QD, (ON DAY 15)
     Route: 065
  61. DOCUSATE [Concomitant]
     Active Substance: DOCUSATE
     Dosage: 100 MILLIGRAM, QD, (ON DAY 16)
     Route: 065
  62. DOCUSATE [Concomitant]
     Active Substance: DOCUSATE
     Dosage: 100 MILLIGRAM, QD, (ON DAY 19)
     Route: 065
  63. DOCUSATE [Concomitant]
     Active Substance: DOCUSATE
     Dosage: 100 MILLIGRAM, QD, (ON DAY 22)
     Route: 065
  64. DOCUSATE [Concomitant]
     Active Substance: DOCUSATE
     Dosage: 200 MILLIGRAM, QD, (ON DAY 23)
     Route: 065
  65. ENOXAPARIN [Concomitant]
     Active Substance: ENOXAPARIN
     Indication: Product used for unknown indication
     Dosage: 40 MILLIGRAM, QD
     Route: 058
  66. FERROUS SULFATE [Concomitant]
     Active Substance: FERROUS SULFATE
     Indication: Iron deficiency anaemia
     Dosage: 325 MILLIGRAM, QD, (ON DAY 1)
     Route: 065
  67. FERROUS SULFATE [Concomitant]
     Active Substance: FERROUS SULFATE
     Dosage: 325 MILLIGRAM, QD, (ON DAY 7)
     Route: 065
  68. FERROUS SULFATE [Concomitant]
     Active Substance: FERROUS SULFATE
     Dosage: 325 MILLIGRAM, QD, (ON DAY 8)
     Route: 065
  69. FERROUS SULFATE [Concomitant]
     Active Substance: FERROUS SULFATE
     Dosage: 325 MILLIGRAM, QD, (ON DAY 13)
     Route: 065
  70. FERROUS SULFATE [Concomitant]
     Active Substance: FERROUS SULFATE
     Dosage: 325 MILLIGRAM, QD, (ON DAY 15)
     Route: 065
  71. FERROUS SULFATE [Concomitant]
     Active Substance: FERROUS SULFATE
     Dosage: 325 MILLIGRAM, QD, (ON DAY 16)
     Route: 065
  72. FERROUS SULFATE [Concomitant]
     Active Substance: FERROUS SULFATE
     Dosage: 325 MILLIGRAM, QD, (ON DAY 19)
     Route: 065
  73. FERROUS SULFATE [Concomitant]
     Active Substance: FERROUS SULFATE
     Dosage: 325 MILLIGRAM, QD, (ON DAY 22)
     Route: 065
  74. FERROUS SULFATE [Concomitant]
     Active Substance: FERROUS SULFATE
     Dosage: 325 MILLIGRAM, QD, (ON DAY 23)
     Route: 065
  75. HALOPERIDOL [Concomitant]
     Active Substance: HALOPERIDOL
     Indication: Schizophrenia
     Dosage: 10 MILLIGRAM, QD, (ON DAY 1)
     Route: 065
  76. HALOPERIDOL [Concomitant]
     Active Substance: HALOPERIDOL
     Dosage: 5 MILLIGRAM, QD, (ON DAY 1)
     Route: 030
  77. HALOPERIDOL [Concomitant]
     Active Substance: HALOPERIDOL
     Dosage: 10 MILLIGRAM, QD, (ON DAY 7)
     Route: 065
  78. HALOPERIDOL [Concomitant]
     Active Substance: HALOPERIDOL
     Dosage: 10 MILLIGRAM, QD, (ON DAY 8)
     Route: 065
  79. HALOPERIDOL [Concomitant]
     Active Substance: HALOPERIDOL
     Dosage: 10 MILLIGRAM, QD, (ON DAY 13)
     Route: 065
  80. HALOPERIDOL [Concomitant]
     Active Substance: HALOPERIDOL
     Dosage: 10 MILLIGRAM, QD, (ON DAY 15)
     Route: 065
  81. HALOPERIDOL [Concomitant]
     Active Substance: HALOPERIDOL
     Dosage: 10 MILLIGRAM, QD, (ON DAY 16)
     Route: 065
  82. HYDROXYZINE [Concomitant]
     Active Substance: HYDROXYZINE HYDROCHLORIDE
     Indication: Product used for unknown indication
     Dosage: 50 MILLIGRAM, QD, (ON DAY 1)
     Route: 065
  83. HYDROXYZINE [Concomitant]
     Active Substance: HYDROXYZINE HYDROCHLORIDE
     Dosage: 50 MILLIGRAM, QD, (ON DAY 8)
     Route: 065
  84. HYDROXYZINE [Concomitant]
     Active Substance: HYDROXYZINE HYDROCHLORIDE
     Dosage: 50 MILLIGRAM, QD, (ON DAY 15)
     Route: 065
  85. HYDROXYZINE [Concomitant]
     Active Substance: HYDROXYZINE HYDROCHLORIDE
     Dosage: 50 MILLIGRAM, QD, (ON DAY 16)
     Route: 065
  86. LEVOTHYROXINE [Concomitant]
     Active Substance: LEVOTHYROXINE
     Indication: Hypothyroidism
     Dosage: 75 MICROGRAM, QD, (ON DAY 1)
     Route: 065
  87. LEVOTHYROXINE [Concomitant]
     Active Substance: LEVOTHYROXINE
     Dosage: 75 MICROGRAM, QD,  (ON DAY 7)
     Route: 065
  88. LEVOTHYROXINE [Concomitant]
     Active Substance: LEVOTHYROXINE
     Dosage: 75 MICROGRAM, QD, (ON DAY 8)
     Route: 065
  89. LEVOTHYROXINE [Concomitant]
     Active Substance: LEVOTHYROXINE
     Dosage: 75 MICROGRAM, QD, (ON DAY 13)
     Route: 065
  90. LEVOTHYROXINE [Concomitant]
     Active Substance: LEVOTHYROXINE
     Dosage: 75 MICROGRAM, QD, (ON DAY 15)
     Route: 065
  91. LEVOTHYROXINE [Concomitant]
     Active Substance: LEVOTHYROXINE
     Dosage: 75 MICROGRAM, QD, (ON DAY 16)
     Route: 065
  92. LEVOTHYROXINE [Concomitant]
     Active Substance: LEVOTHYROXINE
     Dosage: 75 MICROGRAM, QD, (ON DAY 19)
     Route: 065
  93. LEVOTHYROXINE [Concomitant]
     Active Substance: LEVOTHYROXINE
     Dosage: 75 MICROGRAM, QD, (ON DAY 22)
     Route: 065
  94. LEVOTHYROXINE [Concomitant]
     Active Substance: LEVOTHYROXINE
     Dosage: 75 MICROGRAM, QD, (ON DAY 23)
     Route: 065
  95. LORAZEPAM [Concomitant]
     Active Substance: LORAZEPAM
     Indication: Product used for unknown indication
     Dosage: 4 MILLIGRAM, QD, (ON DAY 1)
     Route: 065
  96. MELATONIN [Concomitant]
     Active Substance: MELATONIN
     Indication: Product used for unknown indication
     Dosage: 10 MILLIGRAM, QD, (ON DAY 15)
     Route: 065
  97. NICOTINE TRANSDERMAL SYSTEM [Concomitant]
     Active Substance: NICOTINE
     Indication: Product used for unknown indication
     Dosage: 14 MILLIGRAM, QD
     Route: 065
  98. OMEPRAZOLE [Concomitant]
     Active Substance: OMEPRAZOLE
     Indication: Gastrooesophageal reflux disease
     Dosage: 20 MILLIGRAM, QD, (ON DAY 1)
     Route: 065
  99. OMEPRAZOLE [Concomitant]
     Active Substance: OMEPRAZOLE
     Dosage: 20 MILLIGRAM, QD, (ON DAY 7)
     Route: 065
  100. OMEPRAZOLE [Concomitant]
     Active Substance: OMEPRAZOLE
     Dosage: 20 MILLIGRAM, QD, (ON DAY 8)
     Route: 065
  101. OMEPRAZOLE [Concomitant]
     Active Substance: OMEPRAZOLE
     Dosage: 20 MILLIGRAM, QD, (ON DAY 13)
     Route: 065
  102. OMEPRAZOLE [Concomitant]
     Active Substance: OMEPRAZOLE
     Dosage: 20 MILLIGRAM, QD, (ON DAY 15)
     Route: 065
  103. OMEPRAZOLE [Concomitant]
     Active Substance: OMEPRAZOLE
     Dosage: 20 MILLIGRAM, QD, (ON DAY 16)
     Route: 065
  104. OMEPRAZOLE [Concomitant]
     Active Substance: OMEPRAZOLE
     Dosage: 20 MILLIGRAM, QD, (ON DAY 19)
     Route: 065
  105. OMEPRAZOLE [Concomitant]
     Active Substance: OMEPRAZOLE
     Dosage: 20 MILLIGRAM, QD, (ON DAY 22)
     Route: 065
  106. PANTOPRAZOLE [Concomitant]
     Active Substance: PANTOPRAZOLE
     Indication: Product used for unknown indication
     Dosage: 40 MILLIGRAM, QD
     Route: 065

REACTIONS (6)
  - Myocarditis [Recovered/Resolved]
  - Hypotension [Recovered/Resolved]
  - Tachycardia [Recovered/Resolved]
  - Drug interaction [Unknown]
  - Drug level increased [Recovered/Resolved]
  - Overdose [Unknown]
